FAERS Safety Report 7667284-8 (Version None)
Quarter: 2011Q3

REPORT INFORMATION
  Report Type: 
  Country: None (occurrence: None)
  Receive Date: 20110806
  Receipt Date: 20110404
  Transmission Date: 20111222
  Serious: No
  Sender: FDA-Public Use
  Company Number: US-ABBOTT-11P-163-0716993-00

PATIENT
  Sex: Male
  Weight: 167.98 kg

DRUGS (8)
  1. LASIX [Concomitant]
     Indication: PRODUCT USED FOR UNKNOWN INDICATION
  2. SIMVASTATIN [Concomitant]
     Indication: PRODUCT USED FOR UNKNOWN INDICATION
  3. NIACIN [Suspect]
     Indication: PRODUCT USED FOR UNKNOWN INDICATION
  4. TOPROL-XL [Concomitant]
     Indication: PRODUCT USED FOR UNKNOWN INDICATION
  5. NIASPAN [Suspect]
     Indication: PRODUCT USED FOR UNKNOWN INDICATION
     Dates: start: 20100101
  6. NIACIN [Suspect]
  7. LEVOTHYROXINE SODIUM [Concomitant]
     Indication: PRODUCT USED FOR UNKNOWN INDICATION
  8. AMIODARONE HCL [Concomitant]
     Indication: PRODUCT USED FOR UNKNOWN INDICATION

REACTIONS (4)
  - PRURITUS [None]
  - FLUSHING [None]
  - ERYTHEMA [None]
  - SKIN BURNING SENSATION [None]
